FAERS Safety Report 7889900-8 (Version None)
Quarter: 2011Q4

REPORT INFORMATION
  Report Type: 
  Country: None (occurrence: None)
  Receive Date: 20111103
  Receipt Date: 20111027
  Transmission Date: 20120403
  Serious: Yes (Other)
  Sender: FDA-Public Use
  Company Number: US-US-EMD SERONO, INC.-7092444

PATIENT
  Sex: Female

DRUGS (2)
  1. REBIF [Suspect]
     Route: 058
  2. REBIF [Suspect]
     Indication: MULTIPLE SCLEROSIS
     Route: 058
     Dates: start: 20100604

REACTIONS (7)
  - INJECTION SITE ERYTHEMA [None]
  - OPTIC NEURITIS [None]
  - FATIGUE [None]
  - INJECTION SITE PRURITUS [None]
  - LIMB DISCOMFORT [None]
  - MULTIPLE SCLEROSIS [None]
  - HYPERAESTHESIA [None]
